FAERS Safety Report 14149728 (Version 4)
Quarter: 2019Q1

REPORT INFORMATION
  Report Type: Report from Study
  Country: US (occurrence: US)
  Receive Date: 20171101
  Receipt Date: 20190215
  Transmission Date: 20190417
  Serious: Yes (Hospitalization, Other)
  Sender: FDA-Public Use
  Company Number: US-BAUSCH-BL-2017-030388

PATIENT
  Age: 56 Year
  Sex: Female
  Weight: 59.93 kg

DRUGS (7)
  1. SPIRONOLACTONE. [Concomitant]
     Active Substance: SPIRONOLACTONE
     Indication: PRODUCT USED FOR UNKNOWN INDICATION
     Route: 048
  2. XIFAXAN [Suspect]
     Active Substance: RIFAXIMIN
     Indication: NON-ALCOHOLIC FATTY LIVER
     Route: 048
     Dates: start: 201603, end: 201609
  3. XIFAXAN [Suspect]
     Active Substance: RIFAXIMIN
     Route: 048
     Dates: end: 20160120
  4. VITAMIN D [Concomitant]
     Active Substance: CHOLECALCIFEROL
     Indication: PRODUCT USED FOR UNKNOWN INDICATION
     Route: 048
  5. POTASSIUM [Concomitant]
     Active Substance: POTASSIUM
     Indication: PRODUCT USED FOR UNKNOWN INDICATION
     Route: 048
  6. XIFAXAN [Suspect]
     Active Substance: RIFAXIMIN
     Dosage: THERAPY END DATE 05/JAN/2019 OR 06/JAN/2019
     Route: 048
     Dates: end: 201901
  7. LASIX [Concomitant]
     Active Substance: FUROSEMIDE
     Indication: PRODUCT USED FOR UNKNOWN INDICATION
     Route: 048

REACTIONS (10)
  - Osteoporosis [Unknown]
  - Therapy cessation [Not Recovered/Not Resolved]
  - Product prescribing issue [Recovered/Resolved]
  - Intra-abdominal fluid collection [Recovered/Resolved]
  - Hospitalisation [Unknown]
  - Lumbar vertebral fracture [Not Recovered/Not Resolved]
  - Panic attack [Recovered/Resolved]
  - Pulmonary oedema [Recovered/Resolved]
  - Chest pain [Recovered/Resolved]
  - Pulmonary thrombosis [Recovering/Resolving]

NARRATIVE: CASE EVENT DATE: 201609
